FAERS Safety Report 6417998-2 (Version None)
Quarter: 2009Q4

REPORT INFORMATION
  Report Type: 
  Country: None (occurrence: None)
  Receive Date: 20091028
  Receipt Date: 20091027
  Transmission Date: 20100525
  Serious: Yes (Hospitalization)
  Sender: FDA-Public Use
  Company Number: JP-BRISTOL-MYERS SQUIBB COMPANY-14784425

PATIENT
  Age: 63 Year
  Sex: Female
  Weight: 56 kg

DRUGS (2)
  1. CISPLATIN [Suspect]
     Indication: CERVIX CARCINOMA STAGE IV
     Dosage: CYCLE 1(04JUN-04JUN09;CYCLE 5(27AUG-27AUG09).
     Route: 042
     Dates: start: 20090604, end: 20090827
  2. S-1 [Suspect]
     Indication: CERVIX CARCINOMA STAGE IV
     Dosage: CYCLE 1(04JUN-17JUN09);CYCLE 5(27AUG-07SEP09)
     Route: 048
     Dates: start: 20090604, end: 20090907

REACTIONS (3)
  - HAEMOGLOBIN DECREASED [None]
  - HYPOALBUMINAEMIA [None]
  - ILEUS PARALYTIC [None]
